FAERS Safety Report 25895686 (Version 1)
Quarter: 2025Q4

REPORT INFORMATION
  Report Type: Spontaneous
  Country: EU (occurrence: EU)
  Receive Date: 20251008
  Receipt Date: 20251008
  Transmission Date: 20260118
  Serious: Yes (Hospitalization)
  Sender: TEVA
  Company Number: None

PATIENT
  Age: 39 Year
  Sex: Female
  Weight: 84 kg

DRUGS (9)
  1. TRAMADOL [Suspect]
     Active Substance: TRAMADOL
     Indication: Pain
     Dosage: TRAMADOL HYDROCHLORIDE
     Route: 048
     Dates: start: 20230608
  2. LANSOPRAZOLE [Concomitant]
     Active Substance: LANSOPRAZOLE
     Indication: Product used for unknown indication
     Route: 065
  3. SODIUM FEREDETATE [Suspect]
     Active Substance: SODIUM FEREDETATE
     Indication: Iron deficiency anaemia
     Route: 048
     Dates: start: 20230728
  4. PYRIDOSTIGMINE BROMIDE [Concomitant]
     Active Substance: PYRIDOSTIGMINE BROMIDE
     Indication: Product used for unknown indication
     Route: 065
  5. PERINDOPRIL [Concomitant]
     Active Substance: PERINDOPRIL
     Indication: Product used for unknown indication
     Route: 065
  6. PREDNISONE [Concomitant]
     Active Substance: PREDNISONE
     Indication: Product used for unknown indication
     Route: 065
  7. RITUXIMAB [Suspect]
     Active Substance: RITUXIMAB
     Indication: Muscular weakness
     Dosage: TIME INTERVAL: TOTAL
     Route: 042
     Dates: start: 20241206, end: 20241220
  8. POTASSIUM CHLORIDE [Concomitant]
     Active Substance: POTASSIUM CHLORIDE
     Indication: Product used for unknown indication
     Route: 065
  9. DESOGESTREL [Concomitant]
     Active Substance: DESOGESTREL
     Indication: Product used for unknown indication
     Route: 065

REACTIONS (2)
  - Wheezing [Not Recovered/Not Resolved]
  - Interstitial lung disease [Not Recovered/Not Resolved]

NARRATIVE: CASE EVENT DATE: 20241224
